FAERS Safety Report 9514849 (Version 1)
Quarter: 2013Q1

REPORT INFORMATION
  Report Type: Spontaneous
  Country: US (occurrence: None)
  Receive Date: 20130305
  Receipt Date: 20130305
  Transmission Date: 20140127
  Serious: Yes (Hospitalization, Other)
  Sender: FDA-Public Use
  Company Number: 163-21880-12111920

PATIENT
  Age: 75 Year
  Sex: Female

DRUGS (1)
  1. REVLIMID [Suspect]
     Indication: MYELODYSPLASTIC SYNDROME
     Route: 048
     Dates: start: 20111025

REACTIONS (6)
  - Pneumonia [None]
  - Urinary tract infection [None]
  - Diarrhoea [None]
  - Anaemia [None]
  - Fatigue [None]
  - Muscle spasms [None]
